FAERS Safety Report 5149684-3 (Version None)
Quarter: 2006Q4

REPORT INFORMATION
  Report Type: 
  Country: None (occurrence: None)
  Receive Date: 20061113
  Receipt Date: 20060717
  Transmission Date: 20070319
  Serious: No
  Sender: FDA-Public Use
  Company Number: US-GLAXOSMITHKLINE-A0612503A

PATIENT
  Age: 90 Year
  Sex: Male

DRUGS (7)
  1. COREG [Suspect]
     Indication: CARDIAC FAILURE CONGESTIVE
     Dosage: 25MG TWICE PER DAY
     Route: 048
     Dates: start: 20000101
  2. ZESTRIL [Suspect]
     Indication: CARDIAC FAILURE CONGESTIVE
     Route: 048
  3. GLUCOTROL XL [Concomitant]
  4. PRAVACHOL [Concomitant]
  5. PAXIL [Concomitant]
  6. LASIX [Concomitant]
  7. DIGITEK [Concomitant]

REACTIONS (4)
  - DEPRESSION [None]
  - DIZZINESS [None]
  - FATIGUE [None]
  - LETHARGY [None]
